FAERS Safety Report 25804549 (Version 1)
Quarter: 2025Q3

REPORT INFORMATION
  Report Type: Spontaneous
  Country: EU (occurrence: EU)
  Receive Date: 20250915
  Receipt Date: 20250915
  Transmission Date: 20251021
  Serious: Yes (Hospitalization, Other)
  Sender: NOVARTIS
  Company Number: EU-002147023-NVSC2025RO138343

PATIENT
  Age: 67 Year
  Sex: Female

DRUGS (2)
  1. NILOTINIB [Suspect]
     Active Substance: NILOTINIB
     Indication: Chronic myeloid leukaemia
     Route: 065
  2. IMATINIB [Suspect]
     Active Substance: IMATINIB
     Indication: Chronic myeloid leukaemia
     Route: 065

REACTIONS (8)
  - Syncope [Unknown]
  - Mitral valve incompetence [Unknown]
  - Interventricular septum rupture [Unknown]
  - Pulmonary hypertension [Unknown]
  - Atrial fibrillation [Not Recovered/Not Resolved]
  - Pancreatitis [Unknown]
  - Ventricular extrasystoles [Unknown]
  - Diabetes mellitus inadequate control [Unknown]
